FAERS Safety Report 10229467 (Version 2)
Quarter: 2014Q3

REPORT INFORMATION
  Report Type: Spontaneous
  Country: US (occurrence: US)
  Receive Date: 20140611
  Receipt Date: 20140702
  Transmission Date: 20150326
  Serious: No
  Sender: FDA-Public Use
  Company Number: US-009507513-1406USA003511

PATIENT
  Age: 22 Year
  Sex: Female
  Weight: 68.93 kg

DRUGS (2)
  1. NEXPLANON [Suspect]
     Active Substance: ETONOGESTREL
     Indication: CONTRACEPTION
     Dosage: DOSE/FREQUENCY: STANDARD, 68 MG
     Route: 059
     Dates: start: 20140505
  2. IMPLANON [Concomitant]
     Active Substance: ETONOGESTREL
     Dosage: UNK
     Route: 059
     Dates: start: 201105, end: 20140505

REACTIONS (1)
  - Implant site vesicles [Recovered/Resolved]

NARRATIVE: CASE EVENT DATE: 20140507
